FAERS Safety Report 6369411-1 (Version None)
Quarter: 2009Q3

REPORT INFORMATION
  Report Type: 
  Country: None (occurrence: None)
  Receive Date: 20090917
  Receipt Date: 20090910
  Transmission Date: 20100115
  Serious: Yes (Death, Hospitalization)
  Sender: FDA-Public Use
  Company Number: 2008AL011261

PATIENT
  Age: 64 Year
  Sex: Male

DRUGS (31)
  1. DIGOXIN [Suspect]
     Indication: ATRIAL FIBRILLATION
     Dosage: 0.25MG, DAILY, PO
     Route: 048
     Dates: start: 20020409, end: 20080131
  2. DIGOXIN [Suspect]
     Indication: ATRIAL FIBRILLATION
     Dosage: 0.12MG, DAILY, PO
     Route: 048
  3. PRINIVIL [Concomitant]
  4. AVANDIA [Concomitant]
  5. COUMADIN [Concomitant]
  6. TRIMOX [Concomitant]
  7. METFORMIN HCL [Concomitant]
  8. FUROSEMIDE [Concomitant]
  9. METOPROLOL SUCCINATE [Concomitant]
  10. LISINOPRIL [Concomitant]
  11. KENALOG AEROSOL [Concomitant]
  12. METOLAZONE [Concomitant]
  13. INSPRA [Concomitant]
  14. NITROGLYCERIN [Concomitant]
  15. HYDROCHLOROTHIAZIDE [Concomitant]
  16. POTASSIUM CHLORIDE [Concomitant]
  17. CHLORHEXIDINE GLUCONATE [Concomitant]
  18. OSMOPREP [Concomitant]
  19. AMIODARONE HCL [Concomitant]
  20. NOVOLIN R [Concomitant]
  21. SIMVASTATIN [Concomitant]
  22. GLIPIZIDE [Concomitant]
  23. TOPROL-XL [Concomitant]
  24. SPIRONOLACTONE [Concomitant]
  25. NEXIUM [Concomitant]
  26. K-DUR [Concomitant]
  27. INSULIN [Concomitant]
  28. GLUCOTROL [Concomitant]
  29. ZOCOR [Concomitant]
  30. AMIODARONE HCL [Concomitant]
  31. CORGE [Concomitant]

REACTIONS (31)
  - ABDOMINAL PAIN [None]
  - ANHEDONIA [None]
  - ATRIAL FIBRILLATION [None]
  - BLADDER NEOPLASM [None]
  - CARDIAC FAILURE CONGESTIVE [None]
  - CARDIAC MURMUR [None]
  - CARDIO-RESPIRATORY ARREST [None]
  - CARDIOGENIC SHOCK [None]
  - CARDIOMEGALY [None]
  - CONSTIPATION [None]
  - CORONARY ARTERY DISEASE [None]
  - COUGH [None]
  - DIABETES MELLITUS INADEQUATE CONTROL [None]
  - ECONOMIC PROBLEM [None]
  - ELECTROCARDIOGRAM ST-T SEGMENT ABNORMAL [None]
  - EMOTIONAL DISTRESS [None]
  - EXPOSURE TO TOXIC AGENT [None]
  - HEPATOJUGULAR REFLUX [None]
  - HERNIA REPAIR [None]
  - HYPOKALAEMIA [None]
  - LEFT VENTRICULAR DYSFUNCTION [None]
  - MITRAL VALVE INCOMPETENCE [None]
  - MULTIPLE INJURIES [None]
  - NEOPLASM PROSTATE [None]
  - OCCULT BLOOD POSITIVE [None]
  - PAIN [None]
  - PNEUMONIA [None]
  - PROSTATOMEGALY [None]
  - RENAL FAILURE ACUTE [None]
  - SYNCOPE [None]
  - WEIGHT DECREASED [None]
